FAERS Safety Report 4318948-5 (Version None)
Quarter: 2004Q1

REPORT INFORMATION
  Report Type: 
  Country: None (occurrence: None)
  Receive Date: 20040315
  Receipt Date: 20040303
  Transmission Date: 20041129
  Serious: Yes (Other)
  Sender: FDA-Public Use
  Company Number: HQWYE620208MAR04

PATIENT
  Age: 56 Year
  Sex: Female

DRUGS (26)
  1. EFFEXOR [Suspect]
     Indication: ABNORMAL BEHAVIOUR
     Dosage: 37.5 MG 1X PER 1 DAY
     Route: 048
     Dates: start: 20030715, end: 20030715
  2. EFFEXOR [Suspect]
     Indication: MENTAL DISORDER
     Dosage: 37.5 MG 1X PER 1 DAY
     Route: 048
     Dates: start: 20030715, end: 20030715
  3. EFFEXOR [Suspect]
     Indication: ABNORMAL BEHAVIOUR
     Dosage: 75 MG 1X PER 1 DAY
     Route: 048
     Dates: start: 20030716, end: 20030720
  4. EFFEXOR [Suspect]
     Indication: MENTAL DISORDER
     Dosage: 75 MG 1X PER 1 DAY
     Route: 048
     Dates: start: 20030716, end: 20030720
  5. EFFEXOR [Suspect]
     Indication: ABNORMAL BEHAVIOUR
     Dosage: 112.5 MG 1X PER 1 DAY
     Route: 048
     Dates: start: 20030721, end: 20030722
  6. EFFEXOR [Suspect]
     Indication: MENTAL DISORDER
     Dosage: 112.5 MG 1X PER 1 DAY
     Route: 048
     Dates: start: 20030721, end: 20030722
  7. EFFEXOR [Suspect]
     Indication: ABNORMAL BEHAVIOUR
     Dosage: 150 MG 1X PER 1 DAY
     Route: 048
     Dates: start: 20030723, end: 20030803
  8. EFFEXOR [Suspect]
     Indication: MENTAL DISORDER
     Dosage: 150 MG 1X PER 1 DAY
     Route: 048
     Dates: start: 20030723, end: 20030803
  9. EFFEXOR [Suspect]
     Indication: ABNORMAL BEHAVIOUR
     Dosage: 225 MG 1X PER 1 DAY
     Route: 048
     Dates: start: 20030804, end: 20030818
  10. EFFEXOR [Suspect]
     Indication: MENTAL DISORDER
     Dosage: 225 MG 1X PER 1 DAY
     Route: 048
     Dates: start: 20030804, end: 20030818
  11. EFFEXOR [Suspect]
     Indication: ABNORMAL BEHAVIOUR
     Dosage: 300 MG 1X PER 1 DAY
     Route: 048
     Dates: start: 20030819
  12. EFFEXOR [Suspect]
     Indication: MENTAL DISORDER
     Dosage: 300 MG 1X PER 1 DAY
     Route: 048
     Dates: start: 20030819
  13. DEPAKENE [Suspect]
     Dosage: 300 MG 1X PER 1 DAY
     Route: 048
     Dates: start: 20030630, end: 20030702
  14. DEPAKENE [Suspect]
     Dosage: 600 MG 1X PER 1 DAY
     Route: 048
     Dates: start: 20030703, end: 20030709
  15. DEPAKENE [Suspect]
     Dosage: 500 MG 1X PER 1 DAY
     Route: 048
     Dates: start: 20030710, end: 20030710
  16. DEPAKENE [Suspect]
     Dosage: 1000 MG 1X PER 1 DAY
     Route: 048
     Dates: start: 20030711, end: 20030826
  17. DEPAKENE [Suspect]
     Dosage: 1500 MG 1X PER 1 DAY
     Route: 048
     Dates: start: 20030827, end: 20030917
  18. DEPAKENE [Suspect]
     Dosage: 1750 MG 1X PER 1 DAY
     Route: 048
     Dates: start: 20030918, end: 20031006
  19. DEPAKENE [Suspect]
     Dosage: 2000 MG 1X PER 1 DAY
     Route: 048
     Dates: start: 20031007
  20. ENTUMIN (CLOTIAPINE, ) [Suspect]
     Dosage: 160 MG1X PER 1 DAY
     Route: 048
     Dates: start: 20030827
  21. ZYPREXA [Suspect]
     Dosage: 10 MG 1X PER 1 DAY
     Route: 048
     Dates: start: 20030804, end: 20030902
  22. ZYPREXA [Suspect]
     Dosage: 20 MG 1X PER 1 DAY
     Route: 048
     Dates: start: 20030903
  23. ELTROXIN (LEVOTHYROXINE SODIUM) [Concomitant]
  24. ZOCOR [Concomitant]
  25. PLAVIX (CLOPIDOGREL SULFAET) [Concomitant]
  26. METOPROLOL SUCCINATE [Concomitant]

REACTIONS (8)
  - ALANINE AMINOTRANSFERASE INCREASED [None]
  - ASPARTATE AMINOTRANSFERASE INCREASED [None]
  - BLOOD LACTATE DEHYDROGENASE INCREASED [None]
  - CONDITION AGGRAVATED [None]
  - DRUG INTERACTION POTENTIATION [None]
  - DRUG TOXICITY [None]
  - GAMMA-GLUTAMYLTRANSFERASE INCREASED [None]
  - LIVER DISORDER [None]
